FAERS Safety Report 8417659 (Version 3)
Quarter: 2012Q4

REPORT INFORMATION
  Report Type: 
  Country: US (occurrence: US)
  Receive Date: 20120221
  Receipt Date: 20120926
  Transmission Date: 20130627
  Serious: No
  Sender: FDA-Public Use
  Company Number: US-PFIZER INC-2012040643

PATIENT
  Age: 50 Year
  Sex: Female
  Weight: 113 kg

DRUGS (2)
  1. LYRICA [Suspect]
     Indication: NEUROPATHY PERIPHERAL
     Dosage: 100 mg, Daily
  2. LYRICA [Suspect]
     Dosage: 100 mg, weekly
     Dates: start: 201206, end: 2012

REACTIONS (3)
  - Insomnia [Not Recovered/Not Resolved]
  - Neuralgia [Not Recovered/Not Resolved]
  - Underdose [Unknown]
